FAERS Safety Report 4914986-X (Version None)
Quarter: 2006Q1

REPORT INFORMATION
  Report Type: 
  Country: None (occurrence: None)
  Receive Date: 20060215
  Receipt Date: 20060215
  Transmission Date: 20060701
  Serious: No
  Sender: FDA-Public Use
  Company Number: None

PATIENT
  Sex: Female

DRUGS (2)
  1. NEURONTIN [Suspect]
     Indication: NEUROPATHY
     Dosage: 800MG  1 PO QID   ORAL
     Route: 048
     Dates: start: 20040701
  2. NEURONTIN [Suspect]
     Indication: PAIN IN EXTREMITY
     Dosage: 800MG  1 PO QID   ORAL
     Route: 048
     Dates: start: 20040701

REACTIONS (1)
  - VOMITING [None]
